FAERS Safety Report 5344274-1 (Version None)
Quarter: 2007Q2

REPORT INFORMATION
  Report Type: 
  Country: None (occurrence: None)
  Receive Date: 20070604
  Receipt Date: 20070525
  Transmission Date: 20071010
  Serious: Yes (Death, Other)
  Sender: FDA-Public Use
  Company Number: US-ELI_LILLY_AND_COMPANY-US200705006648

PATIENT
  Age: 27 Year
  Sex: Female

DRUGS (9)
  1. CYMBALTA [Suspect]
  2. VALTREX [Concomitant]
  3. CIPRO [Concomitant]
  4. CLONOPIN [Concomitant]
  5. SEROQUEL [Concomitant]
  6. HYOSCYAMINE [Concomitant]
  7. LEVAQUIN [Concomitant]
  8. URISTAT [Concomitant]
  9. PROPOXYPHENE NAPSYLATE W/PARACETAMOL [Concomitant]

REACTIONS (2)
  - DEATH [None]
  - UNRESPONSIVE TO STIMULI [None]
